FAERS Safety Report 23712510 (Version 2)
Quarter: 2024Q2

REPORT INFORMATION
  Report Type: Spontaneous
  Country: JP (occurrence: None)
  Receive Date: 20240405
  Receipt Date: 20240409
  Transmission Date: 20240716
  Serious: Yes (Hospitalization)
  Sender: FDA-Public Use
  Company Number: 2024A077463

PATIENT
  Age: 65 Year
  Sex: Male

DRUGS (3)
  1. ONDEXXYA [Suspect]
     Active Substance: ANDEXANET ALFA
     Indication: Haemorrhagic infarction
     Dosage: UNKNOWN
     Route: 042
     Dates: start: 20230103, end: 20230103
  2. EDOXABAN TOSYLATE [Concomitant]
     Active Substance: EDOXABAN TOSYLATE
     Dosage: DOSE UNKNOWN
     Route: 048
     Dates: start: 20230103
  3. UNSPECIFIED INGREDIENT [Concomitant]
     Active Substance: UNSPECIFIED INGREDIENT
     Indication: Diabetes mellitus
     Dosage: DOSE UNKNOWN
     Route: 048

REACTIONS (1)
  - Modified Rankin score [Unknown]

NARRATIVE: CASE EVENT DATE: 20230301
